FAERS Safety Report 7248576-3 (Version None)
Quarter: 2011Q1

REPORT INFORMATION
  Report Type: 
  Country: None (occurrence: None)
  Receive Date: 20110128
  Receipt Date: 20101220
  Transmission Date: 20110831
  Serious: Yes (Other)
  Sender: FDA-Public Use
  Company Number: US-BAYER-2010-006618

PATIENT
  Sex: Female
  Weight: 45 kg

DRUGS (1)
  1. ALEVE (CAPLET) [Suspect]
     Dosage: DAILY DOSE 3740 MG
     Dates: start: 20101217

REACTIONS (2)
  - ABDOMINAL DISCOMFORT [None]
  - SOMNOLENCE [None]
